FAERS Safety Report 23965017 (Version 1)
Quarter: 2024Q2

REPORT INFORMATION
  Report Type: Spontaneous
  Country: US (occurrence: US)
  Receive Date: 20240612
  Receipt Date: 20240612
  Transmission Date: 20240716
  Serious: No
  Sender: FDA-Public Use
  Company Number: US-JNJFOC-20240600033

PATIENT
  Age: 70 Year
  Sex: Male

DRUGS (2)
  1. STELARA [Suspect]
     Active Substance: USTEKINUMAB
     Indication: Diverticulitis
     Route: 058
  2. STELARA [Suspect]
     Active Substance: USTEKINUMAB
     Indication: Colitis ulcerative

REACTIONS (7)
  - Cellulitis [Unknown]
  - Pruritus [Unknown]
  - Rash pruritic [Not Recovered/Not Resolved]
  - Rash [Recovering/Resolving]
  - Fatigue [Unknown]
  - Anaemia [Unknown]
  - Off label use [Unknown]
